FAERS Safety Report 5671775-9 (Version None)
Quarter: 2008Q2

REPORT INFORMATION
  Report Type: 
  Country: None (occurrence: None)
  Receive Date: 20080227
  Receipt Date: 20070918
  Transmission Date: 20081010
  Serious: Yes (Other)
  Sender: FDA-Public Use
  Company Number: HQWYE215619SEP07

PATIENT
  Age: 53 Year
  Sex: Female
  Weight: 93.07 kg

DRUGS (1)
  1. EFFEXOR [Suspect]

REACTIONS (1)
  - CONVULSION [None]
